FAERS Safety Report 23602684 (Version 1)
Quarter: 2024Q1

REPORT INFORMATION
  Report Type: Spontaneous
  Country: US (occurrence: US)
  Receive Date: 20240306
  Receipt Date: 20240306
  Transmission Date: 20240410
  Serious: Yes (Other)
  Sender: FDA-Public Use
  Company Number: US-BRISTOL-MYERS SQUIBB COMPANY-2024-032688

PATIENT
  Age: 68 Year
  Sex: Female

DRUGS (1)
  1. REVLIMID [Suspect]
     Active Substance: LENALIDOMIDE
     Indication: Plasma cell myeloma
     Route: 048

REACTIONS (7)
  - Asthenia [Unknown]
  - Nasopharyngitis [Unknown]
  - Gait disturbance [Unknown]
  - Arthralgia [Unknown]
  - Neck pain [Unknown]
  - Myalgia [Unknown]
  - Blood stem cell transplant failure [Unknown]
